FAERS Safety Report 11322000 (Version 1)
Quarter: 2015Q3

REPORT INFORMATION
  Report Type: Spontaneous
  Country: US (occurrence: US)
  Receive Date: 20150729
  Receipt Date: 20150729
  Transmission Date: 20151125
  Serious: Yes (Other)
  Sender: FDA-Public Use
  Company Number: US-PFIZER INC-2015248841

PATIENT
  Age: 64 Year
  Sex: Female
  Weight: 44 kg

DRUGS (3)
  1. NICOTROL [Suspect]
     Active Substance: NICOTINE
     Indication: SMOKING CESSATION THERAPY
     Dosage: UNK(PUFF 5 OR 10 TIMES A DAY)
  2. LYRICA [Suspect]
     Active Substance: PREGABALIN
     Indication: CHRONIC FATIGUE SYNDROME
     Dosage: UNK, 2X/DAY (75 MG IN DAY AND 100 MG AT NIGHT WHILE SLEEPING)
     Dates: start: 2005
  3. FORTUM [Concomitant]
     Active Substance: CEFTAZIDIME
     Indication: BONE DISORDER
     Dosage: 1 MG, 1X/DAY

REACTIONS (2)
  - Fibromyalgia [Unknown]
  - Rheumatoid arthritis [Unknown]
